FAERS Safety Report 9868504 (Version 1)
Quarter: 2014Q1

REPORT INFORMATION
  Report Type: Spontaneous
  Country: US (occurrence: US)
  Receive Date: 20140204
  Receipt Date: 20140204
  Transmission Date: 20141002
  Serious: No
  Sender: FDA-Public Use
  Company Number: US-BAXTER-2014BAX004353

PATIENT
  Sex: Male

DRUGS (3)
  1. GAMMAGARD LIQUID [Suspect]
     Indication: MULTIFOCAL MOTOR NEUROPATHY
     Route: 042
  2. POLYGAM [Concomitant]
     Indication: MULTIFOCAL MOTOR NEUROPATHY
     Route: 042
     Dates: start: 2002, end: 2006
  3. COUMADIN [Concomitant]
     Indication: THROMBOSIS
     Route: 065

REACTIONS (2)
  - Altered state of consciousness [Recovered/Resolved]
  - Superficial vein prominence [Recovered/Resolved]
